FAERS Safety Report 5619791-7 (Version None)
Quarter: 2008Q1

REPORT INFORMATION
  Report Type: 
  Country: None (occurrence: None)
  Receive Date: 20080208
  Receipt Date: 20080131
  Transmission Date: 20080703
  Serious: Yes (Hospitalization)
  Sender: FDA-Public Use
  Company Number: ID-JNJFOC-20071205480

PATIENT
  Sex: Male
  Weight: 57 kg

DRUGS (5)
  1. RISPERIDONE LAI [Suspect]
     Indication: BIPOLAR I DISORDER
     Route: 030
  2. RISPERIDONE [Suspect]
     Route: 048
  3. RISPERIDONE [Suspect]
     Indication: BIPOLAR DISORDER
     Route: 048
  4. SEROQUEL [Suspect]
     Indication: BIPOLAR DISORDER
  5. GLUCOPHAGE [Concomitant]
     Indication: DIABETES MELLITUS

REACTIONS (4)
  - AGGRESSION [None]
  - DELUSION [None]
  - HEPATITIS [None]
  - IRRITABILITY [None]
